FAERS Safety Report 7117611-5 (Version None)
Quarter: 2010Q4

REPORT INFORMATION
  Report Type: 
  Country: None (occurrence: None)
  Receive Date: 20101122
  Receipt Date: 20101118
  Transmission Date: 20110411
  Serious: Yes (Other)
  Sender: FDA-Public Use
  Company Number: CA-ABBOTT-10P-028-0686655-00

PATIENT
  Sex: Male
  Weight: 61.8 kg

DRUGS (1)
  1. MAVIK [Suspect]
     Indication: ESSENTIAL HYPERTENSION
     Dosage: 1 MG DAILY
     Route: 048
     Dates: start: 20090731

REACTIONS (2)
  - BLOOD PRESSURE DECREASED [None]
  - MITRAL VALVE DISEASE [None]
